FAERS Safety Report 9013966 (Version 3)
Quarter: 2013Q3

REPORT INFORMATION
  Report Type: Spontaneous
  Country: US (occurrence: US)
  Receive Date: 20130115
  Receipt Date: 20130923
  Transmission Date: 20140515
  Serious: Yes (Other)
  Sender: FDA-Public Use
  Company Number: US-JNJFOC-20130101254

PATIENT
  Sex: 0

DRUGS (2)
  1. ETRAVIRINE [Suspect]
     Indication: PRODUCT USED FOR UNKNOWN INDICATION
     Dosage: FOR 11-14 DAYS
     Route: 048
  2. BOCEPREVIR [Interacting]
     Indication: PRODUCT USED FOR UNKNOWN INDICATION
     Dosage: FOR 11 TO 14 DAYS
     Route: 065

REACTIONS (7)
  - Hypokalaemia [Unknown]
  - Drug interaction [Unknown]
  - Dysgeusia [Unknown]
  - Headache [Unknown]
  - Fatigue [Unknown]
  - Nausea [Unknown]
  - Rash [Unknown]
